FAERS Safety Report 5759848-3 (Version None)
Quarter: 2008Q3

REPORT INFORMATION
  Report Type: 
  Country: None (occurrence: None)
  Receive Date: 20080605
  Receipt Date: 20080527
  Transmission Date: 20090109
  Serious: Yes (Other)
  Sender: FDA-Public Use
  Company Number: PHHY2008AT07485

PATIENT
  Sex: Female

DRUGS (5)
  1. DIOVAN [Suspect]
     Dosage: 80 MG, UNK
  2. DIOVAN HCT [Interacting]
     Dosage: UNK
  3. NORVASC [Concomitant]
  4. FOSAMAX [Concomitant]
     Indication: OSTEOPOROSIS
  5. CALCIUM WITH VITAMIN D [Interacting]
     Indication: OSTEOPOROSIS

REACTIONS (2)
  - INFLUENZA [None]
  - WHITE BLOOD CELL COUNT DECREASED [None]
